FAERS Safety Report 7578465-6 (Version None)
Quarter: 2011Q2

REPORT INFORMATION
  Report Type: 
  Country: None (occurrence: None)
  Receive Date: 20110622
  Receipt Date: 20110616
  Transmission Date: 20111010
  Serious: Yes (Other)
  Sender: FDA-Public Use
  Company Number: DSA_45059_2011

PATIENT
  Age: 62 Year
  Sex: Female

DRUGS (26)
  1. NOVOLOG [Suspect]
     Indication: DIABETES MELLITUS
     Dosage: (DF UNKNOWN)
     Dates: end: 20090101
  2. LASIX [Concomitant]
  3. CELEXA [Concomitant]
  4. XANAX [Concomitant]
  5. NEURONTIN [Concomitant]
  6. VITAMIN D [Concomitant]
  7. VITAMIN B NOS [Concomitant]
  8. VASOTEC [Suspect]
     Indication: HYPERTENSION
     Dosage: (DF ORAL)
     Route: 048
  9. VITAMIN B6 [Concomitant]
  10. NITROGLYCERIN [Concomitant]
  11. CELEBREX [Suspect]
     Indication: OSTEOARTHRITIS
     Dosage: (DF ORAL)
     Route: 048
  12. GLIPIZIDE [Suspect]
     Indication: DIABETES MELLITUS
     Dosage: (5 MG TID ORAL)
     Route: 048
     Dates: start: 20090101
  13. LANTUS [Concomitant]
  14. CHANTIX [Suspect]
     Indication: SMOKING CESSATION THERAPY
     Dosage: SEE IMAGE
     Route: 048
     Dates: start: 20090901
  15. CHANTIX [Suspect]
     Indication: SMOKING CESSATION THERAPY
     Dosage: SEE IMAGE
     Route: 048
     Dates: start: 20080101
  16. CHANTIX [Suspect]
     Indication: SMOKING CESSATION THERAPY
     Dosage: SEE IMAGE
     Route: 048
     Dates: start: 20100401, end: 20100619
  17. CHANTIX [Suspect]
     Indication: SMOKING CESSATION THERAPY
     Dosage: SEE IMAGE
     Route: 048
     Dates: start: 20080101
  18. CHANTIX [Suspect]
     Indication: SMOKING CESSATION THERAPY
     Dosage: SEE IMAGE
     Route: 048
     Dates: start: 20090601
  19. CHANTIX [Suspect]
     Indication: SMOKING CESSATION THERAPY
     Dosage: SEE IMAGE
     Route: 048
     Dates: start: 20070101, end: 20100101
  20. ASPIRIN [Concomitant]
  21. CALCIUM CARBONATE W/ VITAMIN D NOS [Suspect]
  22. C-VITAMIN [Concomitant]
  23. LOPRESSOR [Concomitant]
  24. PRILOSEC [Concomitant]
  25. DITROPAN [Concomitant]
  26. VALSARTAN [Suspect]
     Indication: HYPERTENSION
     Dosage: (DF ORAL)
     Route: 048

REACTIONS (20)
  - HYPERSOMNIA [None]
  - BLOOD GLUCOSE DECREASED [None]
  - DECREASED APPETITE [None]
  - BLOOD GLUCOSE INCREASED [None]
  - BLOOD IRON DECREASED [None]
  - DRUG ABUSE [None]
  - HYPERSENSITIVITY [None]
  - NICOTINE DEPENDENCE [None]
  - FRUSTRATION [None]
  - DRUG DOSE OMISSION [None]
  - HYPERTENSION [None]
  - MUSCLE SPASMS [None]
  - DRUG INEFFECTIVE [None]
  - NAUSEA [None]
  - TREMOR [None]
  - ALCOHOL USE [None]
  - WRONG TECHNIQUE IN DRUG USAGE PROCESS [None]
  - MEMORY IMPAIRMENT [None]
  - STRESS [None]
  - DEPRESSION [None]
